FAERS Safety Report 7603593-6 (Version None)
Quarter: 2011Q3

REPORT INFORMATION
  Report Type: 
  Country: None (occurrence: None)
  Receive Date: 20110712
  Receipt Date: 20110708
  Transmission Date: 20111222
  Serious: Yes (Other)
  Sender: FDA-Public Use
  Company Number: US-AMGEN-USASP2011030711

PATIENT
  Age: 50 Year
  Sex: Male
  Weight: 67.574 kg

DRUGS (4)
  1. LEUCOVORIN CALCIUM [Concomitant]
     Dosage: 700 MG, Q2WK
     Route: 042
     Dates: start: 20110531
  2. NEUPOGEN [Suspect]
     Indication: CHEMOTHERAPY
     Dosage: 480 A?G, UNK
     Route: 058
     Dates: start: 20110603, end: 20110607
  3. OXALIPLATIN [Suspect]
     Dosage: 185 MG, Q2WK
     Route: 042
     Dates: start: 20110531
  4. FLUOROURACIL [Concomitant]
     Dosage: 880 MG, Q2WK
     Route: 042
     Dates: start: 20110531

REACTIONS (4)
  - SWELLING FACE [None]
  - PRURITUS [None]
  - HYPERSENSITIVITY [None]
  - URTICARIA [None]
